FAERS Safety Report 18300161 (Version 1)
Quarter: 2020Q3

REPORT INFORMATION
  Report Type: Spontaneous
  Country: DE (occurrence: DE)
  Receive Date: 20200923
  Receipt Date: 20200923
  Transmission Date: 20201103
  Serious: Yes (Hospitalization, Other)
  Sender: FDA-Public Use
  Company Number: DE-TEVA-2020-DE-1831507

PATIENT
  Age: 67 Year
  Sex: Male

DRUGS (3)
  1. PREDNISOLON [Suspect]
     Active Substance: PREDNISOLONE
     Dosage: 50 MILLIGRAM DAILY; 1?0?0?0
     Route: 048
  2. CEFUROXIM [Suspect]
     Active Substance: CEFUROXIME
     Dosage: 500 MILLIGRAM DAILY;  2X
     Route: 048
     Dates: start: 20200710
  3. RAMIPRIL. [Concomitant]
     Active Substance: RAMIPRIL
     Dosage: 5 MILLIGRAM DAILY;  1?0?0?0
     Route: 048

REACTIONS (4)
  - Haematochezia [Recovering/Resolving]
  - Diarrhoea [Recovering/Resolving]
  - Melaena [Unknown]
  - General physical health deterioration [Recovering/Resolving]
